FAERS Safety Report 20351315 (Version 1)
Quarter: 2022Q1

REPORT INFORMATION
  Report Type: Spontaneous
  Country: US (occurrence: None)
  Receive Date: 20220118
  Receipt Date: 20220118
  Transmission Date: 20220423
  Serious: No
  Sender: FDA-Public Use
  Company Number: None

PATIENT
  Age: 68 Year
  Sex: Female
  Weight: 58.05 kg

DRUGS (12)
  1. CAPECITABINE [Suspect]
     Active Substance: CAPECITABINE
     Indication: Tonsil cancer
     Dosage: OTHER FREQUENCY : BID X14DAYS, 7OFF;?
     Route: 048
     Dates: start: 20210910
  2. CAPECITABINE [Suspect]
     Active Substance: CAPECITABINE
     Indication: Tonsil cancer
     Dosage: OTHER FREQUENCY : BIDX14 DAYS, 7OFF;?
     Route: 048
     Dates: start: 20210910
  3. ALBUTEROL [Concomitant]
  4. ARMOUR THYROID [Concomitant]
  5. VITAMIN D [Concomitant]
  6. MARINOL [Concomitant]
  7. MAGNESIUM [Concomitant]
  8. VITAMINS [Concomitant]
     Active Substance: VITAMINS
  9. PROCHLORPERAZINE [Concomitant]
     Active Substance: PROCHLORPERAZINE
  10. HERBALS\TURMERIC [Concomitant]
     Active Substance: HERBALS\TURMERIC
  11. XARELTO [Concomitant]
     Active Substance: RIVAROXABAN
  12. ZINC [Concomitant]

REACTIONS (2)
  - Erythema [None]
  - Paraesthesia [None]

NARRATIVE: CASE EVENT DATE: 20211115
